FAERS Safety Report 18043738 (Version 1)
Quarter: 2020Q3

REPORT INFORMATION
  Report Type: Spontaneous
  Country: US (occurrence: US)
  Receive Date: 20200718
  Receipt Date: 20200718
  Transmission Date: 20201103
  Serious: No
  Sender: FDA-Public Use
  Company Number: None

PATIENT
  Age: 23 Year
  Sex: Female

DRUGS (1)
  1. XYZAL ALLERGY 24HR [Suspect]
     Active Substance: LEVOCETIRIZINE DIHYDROCHLORIDE
     Indication: MULTIPLE ALLERGIES
     Route: 048
     Dates: start: 20200504, end: 20200715

REACTIONS (5)
  - Feeling abnormal [None]
  - Therapy interrupted [None]
  - Pruritus [None]
  - Insomnia [None]
  - Irritability [None]

NARRATIVE: CASE EVENT DATE: 20200715
